FAERS Safety Report 12805798 (Version 1)
Quarter: 2016Q4

REPORT INFORMATION
  Report Type: Spontaneous
  Country: TW (occurrence: TW)
  Receive Date: 20161004
  Receipt Date: 20161004
  Transmission Date: 20170207
  Serious: Yes (Other)
  Sender: FDA-Public Use
  Company Number: TW-ROCHE-1838167

PATIENT
  Age: 69 Year
  Sex: Female
  Weight: 52 kg

DRUGS (1)
  1. XOLAIR [Suspect]
     Active Substance: OMALIZUMAB
     Indication: ASTHMA
     Dosage: TWICE A MONTH
     Route: 065
     Dates: start: 20160829

REACTIONS (3)
  - Lip swelling [Recovered/Resolved]
  - Eyelid oedema [Recovered/Resolved]
  - Cheilitis [Recovered/Resolved]

NARRATIVE: CASE EVENT DATE: 20160830
